FAERS Safety Report 15084657 (Version 3)
Quarter: 2019Q1

REPORT INFORMATION
  Report Type: Spontaneous
  Country: US (occurrence: US)
  Receive Date: 20180628
  Receipt Date: 20190207
  Transmission Date: 20190417
  Serious: Yes (Other)
  Sender: FDA-Public Use
  Company Number: US-TEVA-2018-US-913830

PATIENT
  Age: 46 Year
  Sex: Female

DRUGS (4)
  1. MESALAZINE [Suspect]
     Active Substance: MESALAMINE
     Indication: GASTROINTESTINAL DISORDER
     Route: 065
  2. 6-MERCAPTOPURINE [Suspect]
     Active Substance: MERCAPTOPURINE
     Dosage: 50 MILLIGRAM DAILY;
     Route: 065
  3. BUDESONIDE. [Suspect]
     Active Substance: BUDESONIDE
     Indication: GASTROINTESTINAL DISORDER
     Route: 065
  4. 6-MERCAPTOPURINE [Suspect]
     Active Substance: MERCAPTOPURINE
     Indication: GASTROINTESTINAL DISORDER
     Dosage: 75 MILLIGRAM DAILY;
     Route: 065

REACTIONS (4)
  - Decreased appetite [Recovering/Resolving]
  - Leukopenia [Unknown]
  - Oedema peripheral [Recovering/Resolving]
  - Nausea [Recovering/Resolving]
